FAERS Safety Report 24739274 (Version 1)
Quarter: 2024Q4

REPORT INFORMATION
  Report Type: Spontaneous
  Country: US (occurrence: US)
  Receive Date: 20241216
  Receipt Date: 20241216
  Transmission Date: 20250115
  Serious: No
  Sender: ALVOGEN
  Company Number: US-ALVOGEN-2024094703

PATIENT
  Sex: Male

DRUGS (2)
  1. FENTANYL [Suspect]
     Active Substance: FENTANYL
     Indication: Product used for unknown indication
     Dosage: USED 6 MONTH AGO
     Route: 062
     Dates: start: 2023
  2. FENTANYL [Suspect]
     Active Substance: FENTANYL
     Indication: Product used for unknown indication
     Dosage: EXP. DATE: U-JAN-2027?STRENGTH: 50 MCG/HR
     Route: 062

REACTIONS (5)
  - Withdrawal syndrome [Unknown]
  - Device malfunction [Unknown]
  - Device adhesion issue [Unknown]
  - Incorrect dose administered by device [Unknown]
  - Product use issue [Unknown]
